FAERS Safety Report 13067023 (Version 2)
Quarter: 2017Q1

REPORT INFORMATION
  Report Type: Spontaneous
  Country: US (occurrence: US)
  Receive Date: 20161227
  Receipt Date: 20170125
  Transmission Date: 20170428
  Serious: Yes (Hospitalization)
  Sender: FDA-Public Use
  Company Number: US-BEH-2016076526

PATIENT
  Age: 73 Year
  Sex: Female
  Weight: 113.38 kg

DRUGS (27)
  1. VITAMIN C [Concomitant]
     Active Substance: ASCORBIC ACID
  2. DIPHENHYDRAMINE. [Concomitant]
     Active Substance: DIPHENHYDRAMINE
  3. NOVOLOG [Concomitant]
     Active Substance: INSULIN ASPART
  4. MELATONIN [Concomitant]
     Active Substance: MELATONIN
  5. EPIPEN [Concomitant]
     Active Substance: EPINEPHRINE
  6. ACID CONTROLLER [Concomitant]
     Active Substance: FAMOTIDINE
  7. VALSARTAN. [Concomitant]
     Active Substance: VALSARTAN
  8. SIMVASTATIN. [Concomitant]
     Active Substance: SIMVASTATIN
  9. HIZENTRA [Suspect]
     Active Substance: HUMAN IMMUNOGLOBULIN G
     Indication: IMMUNODEFICIENCY COMMON VARIABLE
     Dosage: 24 G, UNK
     Route: 058
     Dates: start: 20110425
  10. MIRALAX [Concomitant]
     Active Substance: POLYETHYLENE GLYCOL 3350
  11. SENOKOT [Concomitant]
     Active Substance: SENNOSIDES
  12. CLONIDINE. [Concomitant]
     Active Substance: CLONIDINE
  13. HIZENTRA [Suspect]
     Active Substance: HUMAN IMMUNOGLOBULIN G
     Dosage: UNK
     Route: 058
  14. NITROSTAT [Concomitant]
     Active Substance: NITROGLYCERIN
  15. METOPROLOL. [Concomitant]
     Active Substance: METOPROLOL
  16. HIZENTRA [Suspect]
     Active Substance: HUMAN IMMUNOGLOBULIN G
     Dosage: UNK
     Route: 058
  17. COUMADIN [Concomitant]
     Active Substance: WARFARIN SODIUM
  18. CLONAZEPAM. [Concomitant]
     Active Substance: CLONAZEPAM
  19. ZYRTEC [Concomitant]
     Active Substance: CETIRIZINE HYDROCHLORIDE
  20. VITAMIN D3 [Concomitant]
     Active Substance: CHOLECALCIFEROL
  21. ARICEPT [Concomitant]
     Active Substance: DONEPEZIL HYDROCHLORIDE
  22. LIDODERM [Concomitant]
     Active Substance: LIDOCAINE
  23. LANTUS [Concomitant]
     Active Substance: INSULIN GLARGINE
  24. SENOKOT [Concomitant]
     Active Substance: SENNOSIDES
  25. IRON [Concomitant]
     Active Substance: IRON
  26. RISPERDAL [Concomitant]
     Active Substance: RISPERIDONE
  27. FOLIC ACID. [Concomitant]
     Active Substance: FOLIC ACID

REACTIONS (2)
  - Urinary tract infection [Unknown]
  - Intestinal resection [Unknown]

NARRATIVE: CASE EVENT DATE: 201612
